FAERS Safety Report 17932869 (Version 1)
Quarter: 2020Q2

REPORT INFORMATION
  Report Type: Spontaneous
  Country: GB (occurrence: GB)
  Receive Date: 20200623
  Receipt Date: 20200623
  Transmission Date: 20200714
  Serious: Yes (Life-Threatening, Hospitalization)
  Sender: FDA-Public Use
  Company Number: GB-PFIZER INC-2020240878

PATIENT
  Age: 35 Year
  Sex: Female
  Weight: 55 kg

DRUGS (15)
  1. THIAMINE. [Concomitant]
     Active Substance: THIAMINE
  2. AMLODIPINE [Concomitant]
     Active Substance: AMLODIPINE BESYLATE
  3. FORTISIP COMPACT [Concomitant]
     Active Substance: CARBOHYDRATES\FATTY ACIDS\MINERALS\PROTEIN\VITAMINS
     Dosage: FORTISIP COMPACT
  4. AMITRIPTYLINE [Concomitant]
     Active Substance: AMITRIPTYLINE
  5. FLUTICASONE. [Concomitant]
     Active Substance: FLUTICASONE
     Dosage: NASULES
  6. COTRIMOXAZOLE [Concomitant]
     Active Substance: SULFAMETHOXAZOLE\TRIMETHOPRIM
  7. METHYLPREDNISOLONE SODIUM SUCCINATE. [Suspect]
     Active Substance: METHYLPREDNISOLONE SODIUM SUCCINATE
     Indication: SENSORY GANGLIONITIS
     Dosage: 500 MG, 1X/DAY
     Route: 042
     Dates: start: 20200522
  8. LANSOPRAZOLE. [Concomitant]
     Active Substance: LANSOPRAZOLE
  9. DIFFLAM [Concomitant]
     Active Substance: BENZYDAMINE HYDROCHLORIDE
  10. CITALOPRAM [Concomitant]
     Active Substance: CITALOPRAM HYDROBROMIDE
  11. ALFACALCIDOL [Concomitant]
     Active Substance: ALFACALCIDOL
  12. PARACETAMOL [Concomitant]
     Active Substance: ACETAMINOPHEN
  13. SALIVA [Concomitant]
  14. SODIUM HYDROGEN CARBONATE [Concomitant]
     Active Substance: SODIUM BICARBONATE
  15. AZATHIOPRINE. [Concomitant]
     Active Substance: AZATHIOPRINE

REACTIONS (18)
  - Agitation [Unknown]
  - Haemoglobin decreased [Unknown]
  - Muscle twitching [Unknown]
  - Confusional state [Unknown]
  - Respiratory rate increased [Unknown]
  - Substance-induced psychotic disorder [Recovering/Resolving]
  - Pyrexia [Unknown]
  - Hypopnoea [Unknown]
  - Emotional distress [Unknown]
  - Sepsis [Unknown]
  - Self-injurious ideation [Unknown]
  - Pneumonia [Unknown]
  - Tachycardia [Unknown]
  - Delirium [Recovering/Resolving]
  - Speech disorder [Unknown]
  - Hyperglycaemia [Unknown]
  - Tongue biting [Unknown]
  - Polyneuropathy [Unknown]

NARRATIVE: CASE EVENT DATE: 20200522
